FAERS Safety Report 13856316 (Version 2)
Quarter: 2017Q3

REPORT INFORMATION
  Report Type: Report from Study
  Country: CR (occurrence: CR)
  Receive Date: 20170810
  Receipt Date: 20170823
  Transmission Date: 20171127
  Serious: Yes (Other)
  Sender: FDA-Public Use
  Company Number: PHHY2017CR117139

PATIENT
  Sex: Female
  Weight: 51 kg

DRUGS (5)
  1. FLOMICIN [Concomitant]
     Indication: PRODUCT USED FOR UNKNOWN INDICATION
     Dosage: (20/360, UNIT NOT REPORTED)
     Route: 065
  2. EXFORGE [Suspect]
     Active Substance: AMLODIPINE BESYLATE\VALSARTAN
     Indication: HYPERTENSION
     Dosage: (AMLODIPINE 5 MG/ VALSARTAN 160 MG)
     Route: 065
  3. CORENTEL [Concomitant]
     Indication: PRODUCT USED FOR UNKNOWN INDICATION
     Dosage: 5 MG, QD
     Route: 048
  4. LEVOTIROX [Concomitant]
     Indication: PRODUCT USED FOR UNKNOWN INDICATION
     Dosage: 50 MG, QD
     Route: 048
  5. EXFORGE HCT [Suspect]
     Active Substance: AMLODIPINE BESYLATE\HYDROCHLOROTHIAZIDE\VALSARTAN
     Indication: HYPERTENSION
     Dosage: (AMLODIPINE 10 MG/ HYDROCHLOROTHIAZIDE 25 MG/ VALSARTAN 320 MG)
     Route: 065

REACTIONS (7)
  - Kidney infection [Unknown]
  - Renal disorder [Unknown]
  - Weight decreased [Unknown]
  - Pollakiuria [Unknown]
  - Blood pressure increased [Unknown]
  - Prescribed overdose [Unknown]
  - Blood pressure abnormal [Unknown]
